FAERS Safety Report 4884008-8 (Version None)
Quarter: 2006Q1

REPORT INFORMATION
  Report Type: 
  Country: None (occurrence: None)
  Receive Date: 20060110
  Receipt Date: 20050601
  Transmission Date: 20060701
  Serious: Yes (Other)
  Sender: FDA-Public Use
  Company Number: 2005BH003451

PATIENT
  Sex: Male

DRUGS (2)
  1. HEMOFIL [Suspect]
     Indication: HAEMOPHILIA
     Dosage: IV
  2. PROPLEX T [Interacting]
     Indication: HAEMOPHILIA
     Dosage: IV
     Route: 042

REACTIONS (1)
  - HEPATITIS C VIRUS [None]
